FAERS Safety Report 4594850-9 (Version None)
Quarter: 2005Q1

REPORT INFORMATION
  Report Type: 
  Country: None (occurrence: None)
  Receive Date: 20050223
  Receipt Date: 20050210
  Transmission Date: 20050727
  Serious: Yes (Hospitalization, Congenital Anomaly)
  Sender: FDA-Public Use
  Company Number: 2005014292

PATIENT
  Age: 1 Day
  Sex: Male

DRUGS (3)
  1. ALPRAZOLAM [Suspect]
     Indication: ANXIETY
     Dosage: 0.8 MG (0.8 MG, 1 IN 1 D)
     Dates: start: 20031230
  2. ETIZOLAM (ETIZOLAM) [Suspect]
     Indication: ANXIETY
     Dosage: 3 MG (1 MG, 3 IN 1 D)
     Dates: start: 20040107
  3. MAPROTILINE HYDROCHLORIDE [Suspect]
     Indication: DEPRESSION
     Dosage: 50 MG (25 MG, 2 IN 1 D)
     Dates: start: 20031230

REACTIONS (3)
  - ANXIETY [None]
  - DRUG EXPOSURE DURING PREGNANCY [None]
  - NO REACTION ON PREVIOUS EXPOSURE TO DRUG [None]
